FAERS Safety Report 8012354-8 (Version None)
Quarter: 2011Q4

REPORT INFORMATION
  Report Type: 
  Country: None (occurrence: None)
  Receive Date: 20111228
  Receipt Date: 20111219
  Transmission Date: 20120403
  Serious: Yes (Hospitalization, Other)
  Sender: FDA-Public Use
  Company Number: US-ASTRAZENECA-2009SE07267

PATIENT
  Age: 74 Year
  Sex: Female

DRUGS (7)
  1. HYDROCODONE [Concomitant]
  2. DARVON [Concomitant]
  3. PULMICORT [Suspect]
     Route: 055
  4. TRAMADOL HCL [Concomitant]
  5. PULMICORT [Suspect]
     Indication: ASTHMA
     Route: 055
  6. ACETAMINOPHEN [Concomitant]
  7. IBUPROFEN [Concomitant]

REACTIONS (40)
  - CHILLS [None]
  - MYCOTIC ALLERGY [None]
  - ERYTHEMA [None]
  - CATARACT [None]
  - HYPERPHAGIA [None]
  - FATIGUE [None]
  - CHEST PAIN [None]
  - HYPERSENSITIVITY [None]
  - ANEURYSM [None]
  - NASAL DRYNESS [None]
  - URINARY TRACT INFECTION [None]
  - DYSPEPSIA [None]
  - NERVE COMPRESSION [None]
  - ANXIETY [None]
  - BLOOD TEST ABNORMAL [None]
  - GLAUCOMA [None]
  - RHINORRHOEA [None]
  - CHEST DISCOMFORT [None]
  - DYSPHONIA [None]
  - HOSPITALISATION [None]
  - FALL [None]
  - ARTHRITIS [None]
  - THYROID FUNCTION TEST ABNORMAL [None]
  - THYROID DISORDER [None]
  - PRURITUS [None]
  - DRUG DOSE OMISSION [None]
  - CHOKING [None]
  - LACRIMATION INCREASED [None]
  - ROTATOR CUFF SYNDROME [None]
  - OROPHARYNGEAL PAIN [None]
  - DIZZINESS [None]
  - AMNESIA [None]
  - RESPIRATORY DISORDER [None]
  - HEAD INJURY [None]
  - MULTIPLE ALLERGIES [None]
  - COUGH [None]
  - OROPHARYNGITIS FUNGAL [None]
  - ROAD TRAFFIC ACCIDENT [None]
  - VOCAL CORD PARALYSIS [None]
  - POLLAKIURIA [None]
